FAERS Safety Report 10931832 (Version 1)
Quarter: 2015Q1

REPORT INFORMATION
  Report Type: Report from Study
  Country: IN (occurrence: IN)
  Receive Date: 20150319
  Receipt Date: 20150319
  Transmission Date: 20150721
  Serious: Yes (Death, Other)
  Sender: FDA-Public Use
  Company Number: IN-GLAXOSMITHKLINE-IN2015GSK034406

PATIENT
  Age: 58 Year
  Sex: Male

DRUGS (1)
  1. PAZOPANIB [Suspect]
     Active Substance: PAZOPANIB
     Indication: RENAL CELL CARCINOMA
     Dosage: UNK
     Dates: start: 201405

REACTIONS (5)
  - Amnesia [Unknown]
  - Asthenia [Unknown]
  - Death [Fatal]
  - Blood test abnormal [Unknown]
  - Aphagia [Unknown]
